FAERS Safety Report 18560774 (Version 1)
Quarter: 2020Q4

REPORT INFORMATION
  Report Type: Spontaneous
  Country: JP (occurrence: JP)
  Receive Date: 20201130
  Receipt Date: 20201130
  Transmission Date: 20210114
  Serious: Yes (Hospitalization)
  Sender: FDA-Public Use
  Company Number: JP-DSJP-DSJ-2020-136297

PATIENT
  Age: 64 Year
  Sex: Male

DRUGS (11)
  1. ATORVASTATIN                       /01326102/ [Concomitant]
     Active Substance: ATORVASTATIN
     Dosage: 10MG/DAY
     Route: 048
  2. EZETIMIBE. [Concomitant]
     Active Substance: EZETIMIBE
     Dosage: 10MG/DAY
     Route: 048
  3. OLMETEC OD TABLETS 20MG [Suspect]
     Active Substance: OLMESARTAN MEDOXOMIL
     Indication: HYPERTENSION
     Dosage: 20MG/DAY
     Route: 048
  4. CEFALEXIN [Concomitant]
     Active Substance: CEPHALEXIN
     Dosage: 750MG/DAY
     Route: 048
  5. ASPIRIN                            /00002701/ [Concomitant]
     Active Substance: ASPIRIN
     Dosage: 100MG/DAY
     Route: 048
  6. AZOSEMIDE [Concomitant]
     Active Substance: AZOSEMIDE
     Dosage: 30MG/DAY
     Route: 048
  7. FEBUXOSTAT. [Concomitant]
     Active Substance: FEBUXOSTAT
     Dosage: 20MG/DAY
     Route: 048
  8. LANTUS [Concomitant]
     Active Substance: INSULIN GLARGINE
     Dosage: UNK
     Route: 065
  9. CLOPIDOGREL [Concomitant]
     Active Substance: CLOPIDOGREL BISULFATE
     Dosage: 75MG/DAY
     Route: 048
  10. BISOPROLOL                         /00802602/ [Concomitant]
     Active Substance: BISOPROLOL
     Dosage: 2.5MG/DAY
     Route: 048
  11. LINAGLIPTIN [Concomitant]
     Active Substance: LINAGLIPTIN
     Dosage: 5MG/DAY
     Route: 048

REACTIONS (1)
  - Skin ulcer [Unknown]
